FAERS Safety Report 5117090-3 (Version None)
Quarter: 2006Q3

REPORT INFORMATION
  Report Type: 
  Country: None (occurrence: None)
  Receive Date: 20060925
  Receipt Date: 20060911
  Transmission Date: 20061208
  Serious: Yes (Other)
  Sender: FDA-Public Use
  Company Number: 2006110795

PATIENT
  Age: 25 Year
  Sex: Male

DRUGS (2)
  1. ZELDOX                                   (ZIPRASIDONE) [Suspect]
     Indication: SCHIZOPHRENIA
     Dosage: 120 MG, ORAL
     Route: 048
     Dates: start: 20060601
  2. CLOZAPINE [Suspect]
     Indication: SCHIZOPHRENIA
     Dosage: 300 MG (100 MG, 3 IN 1 D), ORAL
     Route: 048
     Dates: start: 20060601, end: 20060824

REACTIONS (1)
  - RHABDOMYOLYSIS [None]
